FAERS Safety Report 22180461 (Version 1)
Quarter: 2023Q2

REPORT INFORMATION
  Report Type: Spontaneous
  Country: NL (occurrence: NL)
  Receive Date: 20230406
  Receipt Date: 20230406
  Transmission Date: 20230721
  Serious: Yes (Other)
  Sender: FDA-Public Use
  Company Number: NL-002147023-NVSC2023NL074995

PATIENT
  Age: 55 Year
  Sex: Male

DRUGS (4)
  1. METOPROLOL [Suspect]
     Active Substance: METOPROLOL
     Indication: Angina pectoris
     Dosage: UNK
     Route: 065
     Dates: start: 200904, end: 201002
  2. ASPIRIN [Concomitant]
     Active Substance: ASPIRIN
     Indication: Angina pectoris
     Dosage: UNK
     Route: 065
     Dates: start: 200904
  3. PLAVIX [Concomitant]
     Active Substance: CLOPIDOGREL BISULFATE
     Indication: Angina pectoris
     Dosage: UNK
     Route: 065
     Dates: start: 200904
  4. SIMVASTATIN [Concomitant]
     Active Substance: SIMVASTATIN
     Indication: Angina pectoris
     Dosage: UNK
     Route: 065
     Dates: start: 200904

REACTIONS (2)
  - Sexual dysfunction [Not Recovered/Not Resolved]
  - Erectile dysfunction [Not Recovered/Not Resolved]

NARRATIVE: CASE EVENT DATE: 20090501
